FAERS Safety Report 7055745-4 (Version None)
Quarter: 2010Q4

REPORT INFORMATION
  Report Type: 
  Country: None (occurrence: None)
  Receive Date: 20101021
  Receipt Date: 20101006
  Transmission Date: 20110411
  Serious: Yes (Hospitalization, Other)
  Sender: FDA-Public Use
  Company Number: US-ROCHE-724622

PATIENT
  Sex: Male

DRUGS (1)
  1. ACCUTANE [Suspect]
     Indication: PRODUCT USED FOR UNKNOWN INDICATION
     Route: 065
     Dates: start: 19971203, end: 19980424

REACTIONS (6)
  - BLOOD TRIGLYCERIDES INCREASED [None]
  - CROHN'S DISEASE [None]
  - ILEAL STENOSIS [None]
  - INFLAMMATORY BOWEL DISEASE [None]
  - SMALL INTESTINAL OBSTRUCTION [None]
  - SMALL INTESTINAL PERFORATION [None]
